FAERS Safety Report 9187041 (Version 1)
Quarter: 2012Q4

REPORT INFORMATION
  Report Type: 
  Country: US (occurrence: US)
  Receive Date: 20121031
  Receipt Date: 20121031
  Transmission Date: 20130627
  Serious: Yes (Hospitalization)
  Sender: FDA-Public Use
  Company Number: US-BAYER-2012-113109

PATIENT
  Age: 44 Year
  Sex: Female

DRUGS (8)
  1. YASMIN [Suspect]
  2. ALBUTEROL [Concomitant]
     Dosage: UNK
     Dates: start: 20021014
  3. ZITHROMAX [Concomitant]
     Dosage: UNK
     Route: 048
     Dates: start: 20021014
  4. ALLEGRA [Concomitant]
     Dosage: One tablet daily
     Route: 048
  5. PROZAC [Concomitant]
     Dosage: 20 mg, UNK
     Route: 048
  6. VIOXX [Concomitant]
     Dosage: One tablet daily
     Route: 048
  7. ATIVAN [Concomitant]
     Dosage: UNK UNK, HS
     Route: 048
  8. ERYTHROMYCIN [Concomitant]

REACTIONS (1)
  - Pulmonary embolism [None]
